FAERS Safety Report 19292705 (Version 1)
Quarter: 2021Q2

REPORT INFORMATION
  Report Type: Other
  Country: US (occurrence: US)
  Receive Date: 20210524
  Receipt Date: 20210524
  Transmission Date: 20210717
  Serious: Yes (Hospitalization)
  Sender: FDA-Public Use
  Company Number: US-DEXPHARM-20210687

PATIENT
  Age: 69 Year
  Sex: Female

DRUGS (2)
  1. DEXAMETHASONE. [Suspect]
     Active Substance: DEXAMETHASONE
  2. DEXAMETHASONE. [Suspect]
     Active Substance: DEXAMETHASONE

REACTIONS (1)
  - Immune thrombocytopenia [Recovered/Resolved]
